FAERS Safety Report 5869848-0 (Version None)
Quarter: 2008Q3

REPORT INFORMATION
  Report Type: 
  Country: None (occurrence: None)
  Receive Date: 20080904
  Receipt Date: 20080901
  Transmission Date: 20090109
  Serious: Yes (Life-Threatening, Hospitalization)
  Sender: FDA-Public Use
  Company Number: DE-BRISTOL-MYERS SQUIBB COMPANY-14321681

PATIENT
  Age: 64 Year
  Sex: Female
  Weight: 81 kg

DRUGS (7)
  1. CYCLOPHOSPHAMIDE [Suspect]
     Indication: BREAST CANCER
     Dates: start: 20080101
  2. TAXOL [Suspect]
     Indication: BREAST CANCER
     Dosage: FREQUENCY = 14
     Route: 042
     Dates: start: 20080825
  3. EPIRUBICIN [Suspect]
     Indication: BREAST CANCER
     Dosage: FREQUENCY = 14D
     Route: 042
     Dates: start: 20080714, end: 20080811
  4. NEORECORMON [Suspect]
     Indication: ANAEMIA PROPHYLAXIS
     Dosage: FREQUENCY = 14D
     Route: 058
     Dates: start: 20080714
  5. PEGFILGRASTIM [Suspect]
     Indication: PROPHYLAXIS
     Dosage: FREQUENCY = 14D
     Route: 058
     Dates: start: 20080811
  6. NAVOBAN [Concomitant]
     Dosage: FREQUENCY = 14D
     Route: 042
     Dates: start: 20080714
  7. DEXAMETHASONE TAB [Concomitant]
     Dosage: FREQUENCY = 14D
     Route: 042
     Dates: start: 20080714

REACTIONS (1)
  - THROMBOSIS [None]
